FAERS Safety Report 4300868-3 (Version None)
Quarter: 2004Q1

REPORT INFORMATION
  Report Type: 
  Country: None (occurrence: None)
  Receive Date: 20040219
  Receipt Date: 20040217
  Transmission Date: 20041129
  Serious: Yes (Hospitalization)
  Sender: FDA-Public Use
  Company Number: J400925410

PATIENT
  Sex: Female

DRUGS (2)
  1. AK-FLUOR [Suspect]
     Indication: ANGIOGRAM RETINA
     Dosage: 1 ML, INTRAVENOUS
     Route: 042
     Dates: start: 20040202
  2. NEOSYNEPHRINE [Suspect]
     Indication: MYDRIASIS
     Dosage: OPHTHALMIC
     Route: 047

REACTIONS (4)
  - DIZZINESS [None]
  - HYPERHIDROSIS [None]
  - HYPOTENSION [None]
  - VOMITING [None]
